FAERS Safety Report 4438134-8 (Version None)
Quarter: 2004Q3

REPORT INFORMATION
  Report Type: 
  Country: None (occurrence: None)
  Receive Date: 20040831
  Receipt Date: 20040527
  Transmission Date: 20050211
  Serious: No
  Sender: FDA-Public Use
  Company Number: US-GLAXOSMITHKLINE-A0512414A

PATIENT
  Age: 32 Year
  Sex: Female

DRUGS (2)
  1. WELLBUTRIN XL [Suspect]
     Indication: DEPRESSION
     Dosage: 300MG PER DAY
     Route: 048
     Dates: start: 20040506, end: 20040526
  2. NO CONCURRENT MEDICATION [Concomitant]

REACTIONS (3)
  - CANDIDIASIS [None]
  - DRY MOUTH [None]
  - ORAL DISCOMFORT [None]
